FAERS Safety Report 20678769 (Version 2)
Quarter: 2022Q2

REPORT INFORMATION
  Report Type: Report from Study
  Country: US (occurrence: US)
  Receive Date: 20220406
  Receipt Date: 20220531
  Transmission Date: 20220720
  Serious: Yes (Disabling, Other)
  Sender: FDA-Public Use
  Company Number: US-OTSUKA-2022_021026

PATIENT
  Age: 56 Year
  Sex: Female

DRUGS (6)
  1. BREXPIPRAZOLE [Suspect]
     Active Substance: BREXPIPRAZOLE
     Indication: Depression
     Dosage: 2 MG, QD
     Route: 065
     Dates: start: 2018, end: 202111
  2. ARIPIPRAZOLE [Suspect]
     Active Substance: ARIPIPRAZOLE
     Indication: Depression
     Dosage: 5 MG, QD
     Route: 065
     Dates: start: 202202
  3. LITHIUM [Suspect]
     Active Substance: LITHIUM
     Indication: Depression
     Dosage: UNK (FOR 2 DAYS)
     Route: 065
  4. LASIX [Concomitant]
     Active Substance: FUROSEMIDE
     Indication: Product used for unknown indication
     Dosage: UNK
     Route: 065
  5. METOPROLOL [Concomitant]
     Active Substance: METOPROLOL
     Indication: Product used for unknown indication
     Dosage: UNK
     Route: 065
  6. TRAZODONE [Concomitant]
     Active Substance: TRAZODONE HYDROCHLORIDE
     Indication: Sleep disorder
     Dosage: UNK
     Route: 065

REACTIONS (6)
  - Disability [Unknown]
  - Renal failure [Not Recovered/Not Resolved]
  - Blood potassium decreased [Not Recovered/Not Resolved]
  - Confusional state [Recovered/Resolved]
  - Drug ineffective [Unknown]
  - Therapy cessation [Unknown]

NARRATIVE: CASE EVENT DATE: 20211101
